FAERS Safety Report 20689625 (Version 1)
Quarter: 2022Q2

REPORT INFORMATION
  Report Type: Spontaneous
  Country: US (occurrence: US)
  Receive Date: 20220408
  Receipt Date: 20220408
  Transmission Date: 20220721
  Serious: No
  Sender: FDA-Public Use
  Company Number: US-SA-SAC20220406000666

PATIENT
  Sex: Male

DRUGS (3)
  1. DUPIXENT [Suspect]
     Active Substance: DUPILUMAB
     Indication: Dermatitis atopic
     Dosage: UNK UNK, 1X
     Route: 058
     Dates: start: 20220321, end: 20220321
  2. DUPIXENT [Suspect]
     Active Substance: DUPILUMAB
     Dosage: 300 MG, QOW
     Route: 058
  3. CETAPHIL [CETYL ALCOHOL;SODIUM LAURYL SULFATE;STEARYL ALCOHOL] [Concomitant]

REACTIONS (3)
  - Skin ulcer [Unknown]
  - Joint swelling [Recovered/Resolved]
  - Pruritus [Unknown]
